FAERS Safety Report 6311639-0 (Version None)
Quarter: 2009Q3

REPORT INFORMATION
  Report Type: 
  Country: None (occurrence: None)
  Receive Date: 20090817
  Receipt Date: 20090810
  Transmission Date: 20100115
  Serious: Yes (Hospitalization)
  Sender: FDA-Public Use
  Company Number: B0587893A

PATIENT
  Age: 63 Year
  Sex: Female
  Weight: 138 kg

DRUGS (2)
  1. AUGMENTIN [Suspect]
     Route: 065
     Dates: start: 20090316
  2. AMIAS [Suspect]
     Route: 048
     Dates: start: 20090316, end: 20090320

REACTIONS (2)
  - CELLULITIS [None]
  - RASH [None]
